FAERS Safety Report 15497810 (Version 1)
Quarter: 2018Q4

REPORT INFORMATION
  Report Type: Spontaneous
  Country: US (occurrence: US)
  Receive Date: 20181015
  Receipt Date: 20181015
  Transmission Date: 20190205
  Serious: Yes (Other)
  Sender: FDA-Public Use
  Company Number: US-HIKMA PHARMACEUTICALS USA INC.-US-H14001-18-07745

PATIENT
  Age: 58 Year
  Sex: Male

DRUGS (2)
  1. NIACINAMIDE [Suspect]
     Active Substance: NIACINAMIDE
     Indication: LINEAR IGA DISEASE
     Route: 065
  2. DOXYCYCLINE. [Suspect]
     Active Substance: DOXYCYCLINE
     Indication: LINEAR IGA DISEASE
     Route: 065

REACTIONS (4)
  - Flushing [Unknown]
  - Condition aggravated [Not Recovered/Not Resolved]
  - Drug ineffective for unapproved indication [Recovered/Resolved]
  - Linear IgA disease [Not Recovered/Not Resolved]
